FAERS Safety Report 8969623 (Version 1)
Quarter: 2012Q4

REPORT INFORMATION
  Report Type: Spontaneous
  Country: US (occurrence: None)
  Receive Date: 20121210
  Receipt Date: 20121210
  Transmission Date: 20130627
  Serious: Yes (Hospitalization)
  Sender: FDA-Public Use
  Company Number: CL-452-2012

PATIENT
  Age: 21 Year
  Sex: Female

DRUGS (3)
  1. METRONIDAZOLE [Suspect]
     Dosage: unk unk iv
     Route: 042
  2. LEVOFLOXACIN [Suspect]
     Dosage: unk unk iv
     Route: 042
  3. VANCOMYCIN [Suspect]
     Dosage: unk unk iv
     Route: 042

REACTIONS (1)
  - Drug reaction with eosinophilia and systemic symptoms [None]
